FAERS Safety Report 9212496 (Version 3)
Quarter: 2013Q4

REPORT INFORMATION
  Report Type: Report from Study
  Country: GB (occurrence: GB)
  Receive Date: 20130405
  Receipt Date: 20131002
  Transmission Date: 20140711
  Serious: Yes (Hospitalization, Disabling)
  Sender: FDA-Public Use
  Company Number: GB-MERCK-1304GBR001158

PATIENT
  Age: 78 Year
  Sex: Female

DRUGS (5)
  1. VORINOSTAT [Suspect]
     Dosage: 300 MG, D1-D7, D15-D21
     Route: 048
     Dates: start: 20121009, end: 20130321
  2. LENALIDOMIDE [Suspect]
     Dosage: 25 MG, D1-D21
     Route: 048
     Dates: start: 20121009, end: 20130324
  3. LENALIDOMIDE [Suspect]
     Dosage: UNK
  4. CYCLOPHOSPHAMIDE [Suspect]
     Dosage: 500 MG, D1+D8
     Route: 048
     Dates: start: 20130305
  5. DEXAMETHASONE [Suspect]
     Dosage: 20 MG, D1-D4, D15-D18
     Route: 048
     Dates: start: 20120305

REACTIONS (1)
  - Cerebrovascular accident [Recovering/Resolving]
